FAERS Safety Report 20965465 (Version 3)
Quarter: 2022Q2

REPORT INFORMATION
  Report Type: Spontaneous
  Country: US (occurrence: US)
  Receive Date: 20220616
  Receipt Date: 20220630
  Transmission Date: 20220720
  Serious: Yes (Hospitalization, Other)
  Sender: FDA-Public Use
  Company Number: US-Blueprint Medicines Corporation-134

PATIENT
  Sex: Male

DRUGS (1)
  1. AYVAKIT [Suspect]
     Active Substance: AVAPRITINIB
     Indication: Systemic mastocytosis
     Route: 048
     Dates: start: 20211008

REACTIONS (5)
  - COVID-19 [Recovered/Resolved]
  - Tremor [Unknown]
  - Chills [Unknown]
  - Gait disturbance [Unknown]
  - Laboratory test abnormal [Unknown]
